FAERS Safety Report 10211405 (Version 2)
Quarter: 2014Q2

REPORT INFORMATION
  Report Type: Spontaneous
  Country: US (occurrence: US)
  Receive Date: 20140602
  Receipt Date: 20140602
  Transmission Date: 20141212
  Serious: Yes (Hospitalization)
  Sender: FDA-Public Use
  Company Number: US-BAXTER-2014BAX026141

PATIENT
  Sex: Male

DRUGS (2)
  1. DIANEAL LOW CALCIUM [Suspect]
     Indication: MENINGITIS BACTERIAL
     Route: 033
  2. DIANEAL LOW CALCIUM [Suspect]
     Indication: OFF LABEL USE

REACTIONS (1)
  - Renal failure [Unknown]
